FAERS Safety Report 4946634-7 (Version None)
Quarter: 2006Q1

REPORT INFORMATION
  Report Type: 
  Country: None (occurrence: None)
  Receive Date: 20060313
  Receipt Date: 20060302
  Transmission Date: 20060701
  Serious: Yes (Hospitalization)
  Sender: FDA-Public Use
  Company Number: 2005123616

PATIENT
  Age: 58 Year
  Sex: Female
  Weight: 72.5755 kg

DRUGS (7)
  1. SILDENAFIL [Suspect]
     Indication: PULMONARY HYPERTENSION
     Dosage: 60 MG (20 MG, 3 IN 1 D), ORAL
     Route: 048
     Dates: start: 20050506, end: 20050901
  2. WARFARIN [Concomitant]
  3. TENORMIN [Concomitant]
  4. HYDROCHLOROTHIAZIDE [Concomitant]
  5. COZAAR [Concomitant]
  6. PREVACID [Concomitant]
  7. FLOLAN [Concomitant]

REACTIONS (2)
  - CATHETER RELATED COMPLICATION [None]
  - DILATATION ATRIAL [None]
